FAERS Safety Report 8008468-9 (Version None)
Quarter: 2011Q4

REPORT INFORMATION
  Report Type: 
  Country: None (occurrence: None)
  Receive Date: 20111227
  Receipt Date: 20111219
  Transmission Date: 20120403
  Serious: Yes (Other)
  Sender: FDA-Public Use
  Company Number: US-ROCHE-780680

PATIENT
  Sex: Female
  Weight: 58.112 kg

DRUGS (1)
  1. ACCUTANE [Suspect]
     Indication: ACNE
     Route: 065
     Dates: start: 19840101, end: 19860601

REACTIONS (6)
  - INTESTINAL OBSTRUCTION [None]
  - DEPRESSION [None]
  - ILEAL STENOSIS [None]
  - COLITIS ULCERATIVE [None]
  - INFLAMMATORY BOWEL DISEASE [None]
  - ABDOMINAL ABSCESS [None]
